FAERS Safety Report 9707334 (Version 1)
Quarter: 2013Q4

REPORT INFORMATION
  Report Type: Spontaneous
  Country: US (occurrence: US)
  Receive Date: 20131125
  Receipt Date: 20131125
  Transmission Date: 20140711
  Serious: No
  Sender: FDA-Public Use
  Company Number: US-GLAXOSMITHKLINE-A1022509A

PATIENT
  Age: 67 Year
  Sex: Female

DRUGS (8)
  1. FLOVENT [Suspect]
     Indication: ASTHMA
     Dosage: 1PUFF TWICE PER DAY
     Route: 055
     Dates: start: 201206
  2. PRO-AIR [Concomitant]
  3. ENJUVIA [Concomitant]
  4. ZYRTEC [Concomitant]
  5. MULTI-VITAMIN [Concomitant]
  6. CALCIUM [Concomitant]
  7. VITAMIN B [Concomitant]
  8. TRIAMCINOLONE .1% [Concomitant]

REACTIONS (3)
  - Blister [Not Recovered/Not Resolved]
  - Pain in extremity [Unknown]
  - Rash [Unknown]
